FAERS Safety Report 23764329 (Version 1)
Quarter: 2024Q2

REPORT INFORMATION
  Report Type: Spontaneous
  Country: US (occurrence: US)
  Receive Date: 20240420
  Receipt Date: 20240420
  Transmission Date: 20240716
  Serious: No
  Sender: FDA-Public Use
  Company Number: US-HALEON-2167034

PATIENT

DRUGS (4)
  1. SENSODYNE CLINICAL WHITE ENAMEL STRENGTHENING [Suspect]
     Active Substance: POTASSIUM NITRATE\SODIUM FLUORIDE
     Indication: Product used for unknown indication
     Dosage: TIME INTERVAL: 0.33333333 DAYS: EXPDATE:202611
  2. SENSODYNE CLINICAL WHITE ENAMEL STRENGTHENING [Suspect]
     Active Substance: POTASSIUM NITRATE\SODIUM FLUORIDE
     Dosage: TIME INTERVAL: 0.33333333 DAYS: EXPDATE:202611
  3. SENSODYNE CLINICAL WHITE ENAMEL STRENGTHENING [Suspect]
     Active Substance: POTASSIUM NITRATE\SODIUM FLUORIDE
     Dosage: TIME INTERVAL: 0.33333333 DAYS: EXPDATE:202611
  4. SENSODYNE CLINICAL WHITE ENAMEL STRENGTHENING [Suspect]
     Active Substance: POTASSIUM NITRATE\SODIUM FLUORIDE
     Dosage: TIME INTERVAL: 0.33333333 DAYS: EXPDATE:202611

REACTIONS (1)
  - Drug ineffective [Unknown]
